FAERS Safety Report 10338174 (Version 1)
Quarter: 2014Q3

REPORT INFORMATION
  Report Type: Spontaneous
  Country: US (occurrence: US)
  Receive Date: 20140724
  Receipt Date: 20140724
  Transmission Date: 20150326
  Serious: Yes (Other)
  Sender: FDA-Public Use
  Company Number: US-BAYER-2014-108681

PATIENT
  Sex: Male

DRUGS (1)
  1. BETASERON [Suspect]
     Active Substance: INTERFERON BETA-1B
     Indication: MULTIPLE SCLEROSIS
     Dosage: 0.25 MG, QOD
     Route: 058
     Dates: start: 2012

REACTIONS (7)
  - Nausea [None]
  - Balance disorder [None]
  - Injection site discomfort [None]
  - Abasia [None]
  - Vomiting [None]
  - Diarrhoea [None]
  - Dysstasia [None]

NARRATIVE: CASE EVENT DATE: 2012
